FAERS Safety Report 12739075 (Version 1)
Quarter: 2016Q3

REPORT INFORMATION
  Report Type: Spontaneous
  Country: ZA (occurrence: ZA)
  Receive Date: 20160913
  Receipt Date: 20160913
  Transmission Date: 20161109
  Serious: Yes (Other)
  Sender: FDA-Public Use
  Company Number: ZA-PFIZER INC-2016414277

PATIENT
  Age: 70 Year
  Sex: Male

DRUGS (1)
  1. TYGACIL [Suspect]
     Active Substance: TIGECYCLINE
     Indication: POST PROCEDURAL CELLULITIS
     Dosage: 100 MG, OVER 1 HOUR
     Route: 042
     Dates: start: 20160906

REACTIONS (12)
  - Hyperventilation [Recovered/Resolved]
  - Malaise [Recovered/Resolved]
  - Rash erythematous [Recovered/Resolved]
  - Supraventricular tachycardia [Recovered/Resolved]
  - Somnolence [Not Recovered/Not Resolved]
  - Pyrexia [Recovered/Resolved]
  - Unresponsive to stimuli [Recovered/Resolved]
  - Tonic convulsion [Recovered/Resolved]
  - Skin discolouration [Recovered/Resolved]
  - Oxygen saturation decreased [Recovered/Resolved]
  - Hypertension [Recovered/Resolved]
  - Infusion site rash [Recovered/Resolved]

NARRATIVE: CASE EVENT DATE: 20160906
